FAERS Safety Report 23658032 (Version 1)
Quarter: 2024Q1

REPORT INFORMATION
  Report Type: Spontaneous
  Country: US (occurrence: None)
  Receive Date: 20240321
  Receipt Date: 20240321
  Transmission Date: 20240409
  Serious: Yes (Other)
  Sender: FDA-Public Use
  Company Number: 2024A063740

PATIENT
  Sex: Female

DRUGS (2)
  1. SYMBICORT [Suspect]
     Active Substance: BUDESONIDE\FORMOTEROL FUMARATE DIHYDRATE
     Indication: Wheezing
     Dosage: 160 UG/INHAL PRN AS REQUIRED
     Route: 055
     Dates: start: 1980
  2. PREDNISONE [Concomitant]
     Active Substance: PREDNISONE

REACTIONS (6)
  - Pneumonia [Unknown]
  - Asthma [Unknown]
  - Throat irritation [Unknown]
  - Dry throat [Unknown]
  - Device use issue [Unknown]
  - Device delivery system issue [Unknown]
